FAERS Safety Report 19999637 (Version 9)
Quarter: 2022Q4

REPORT INFORMATION
  Report Type: Report from Study
  Country: ES (occurrence: ES)
  Receive Date: 20211026
  Receipt Date: 20221104
  Transmission Date: 20230113
  Serious: Yes (Life-Threatening, Hospitalization)
  Sender: FDA-Public Use
  Company Number: ES-AMGEN-ESPCT2021166852

PATIENT
  Age: 46 Year
  Sex: Female
  Weight: 49.3 kg

DRUGS (16)
  1. BLINATUMOMAB [Suspect]
     Active Substance: BLINATUMOMAB
     Indication: Acute lymphocytic leukaemia
     Dosage: 250 MICROGRAM
     Route: 058
     Dates: start: 20211022
  2. BLINATUMOMAB [Suspect]
     Active Substance: BLINATUMOMAB
     Dosage: UNK
     Route: 058
     Dates: start: 20211027
  3. DEXAMETHASONE [Concomitant]
     Active Substance: DEXAMETHASONE
     Dosage: 8-24 MILLIGRAM
     Route: 048
     Dates: start: 20211014
  4. CYCLOPHOSPHAMIDE [Concomitant]
     Active Substance: CYCLOPHOSPHAMIDE
     Dosage: 298 MILLIGRAM
     Route: 042
     Dates: start: 20211018, end: 20211021
  5. ONDANSETRON [Concomitant]
     Active Substance: ONDANSETRON
     Dosage: 8 MILLIGRAM
     Route: 042
     Dates: start: 20211020, end: 20211026
  6. ACYCLOVIR [Concomitant]
     Active Substance: ACYCLOVIR
     Dosage: 800 MILLIGRAM
     Route: 048
     Dates: start: 20211014, end: 20211025
  7. METAMIZOLE [Concomitant]
     Active Substance: METAMIZOLE
     Dosage: 2000 MILLIGRAM
     Route: 042
     Dates: start: 20211022, end: 20211023
  8. OMEPRAZOLE [Concomitant]
     Active Substance: OMEPRAZOLE
     Dosage: 20 MILLIGRAM
     Route: 048
     Dates: start: 20211014, end: 20211105
  9. ALLOPURINOL [Concomitant]
     Active Substance: ALLOPURINOL
     Dosage: 300 MILLIGRAM
     Route: 048
     Dates: start: 20211014, end: 20211029
  10. ACETAMINOPHEN [Concomitant]
     Active Substance: ACETAMINOPHEN
     Dosage: 1000 MILLIGRAM AND 1 GRAM
     Route: 042
     Dates: start: 20211018, end: 20211105
  11. LORAZEPAM [Concomitant]
     Active Substance: LORAZEPAM
     Dosage: 1 MILLIGRAM
     Route: 048
     Dates: start: 20211019, end: 20211105
  12. CALCIUM CARBONATE [Concomitant]
     Active Substance: CALCIUM CARBONATE
     Dosage: 1250 MILLIGRAM
     Route: 048
     Dates: start: 20211014, end: 20211023
  13. SULFAMETHOXAZOLE\TRIMETHOPRIM [Concomitant]
     Active Substance: SULFAMETHOXAZOLE\TRIMETHOPRIM
     Dosage: 160 MILLIGRAM
     Route: 042
     Dates: start: 20211014, end: 20211105
  14. METOCLOPRAMIDE [Concomitant]
     Active Substance: METOCLOPRAMIDE
     Dosage: 10 MILLIGRAM
     Route: 042
     Dates: start: 20211018, end: 20211025
  15. ESTRADIOL [Concomitant]
     Active Substance: ESTRADIOL
     Dosage: 2 MILLIGRAM
     Route: 048
     Dates: start: 20211018, end: 20211024
  16. MERCAPTOPURINE [Concomitant]
     Active Substance: MERCAPTOPURINE
     Dosage: 50 MILLIGRAM
     Route: 048
     Dates: start: 20211021, end: 20211021

REACTIONS (2)
  - Hepatotoxicity [Recovered/Resolved]
  - Cytokine release syndrome [Recovered/Resolved]

NARRATIVE: CASE EVENT DATE: 20211023
